FAERS Safety Report 8339720-5 (Version None)
Quarter: 2012Q2

REPORT INFORMATION
  Report Type: 
  Country: None (occurrence: None)
  Receive Date: 20120507
  Receipt Date: 20120502
  Transmission Date: 20120825
  Serious: Yes (Hospitalization, Other)
  Sender: FDA-Public Use
  Company Number: PHHY2012DE016886

PATIENT
  Sex: Male

DRUGS (3)
  1. VALSARTAN [Suspect]
     Dosage: 0.5 DF (160 MG VALSARTAN/ 5 MG AMLODIPINE), QD
     Dates: start: 20110101, end: 20120201
  2. VALSARTAN [Suspect]
     Dosage: 1 DF (160 MG VALSARTAN/ 5 MG AMLODIPINE), QD
     Dates: end: 20110101
  3. VALSARTAN [Suspect]
     Dosage: 1 DF (80 MG VALSARTAN/ 5 MG AMLODIPINE), QD
     Dates: start: 20120201

REACTIONS (5)
  - ATRIAL FIBRILLATION [None]
  - INTESTINAL OBSTRUCTION [None]
  - WRONG TECHNIQUE IN DRUG USAGE PROCESS [None]
  - PROTHROMBIN TIME ABNORMAL [None]
  - BLOOD PRESSURE INCREASED [None]
